FAERS Safety Report 8775506 (Version 2)
Quarter: 2013Q1

REPORT INFORMATION
  Report Type: Report from Study
  Country: US (occurrence: US)
  Receive Date: 20120910
  Receipt Date: 20130104
  Transmission Date: 20140127
  Serious: Yes (Life-Threatening, Hospitalization)
  Sender: FDA-Public Use
  Company Number: US-SHIRE-ALL1-2012-04127

PATIENT
  Age: 5 Year
  Sex: Male
  Weight: 16 kg

DRUGS (3)
  1. IDURSULFASE [Suspect]
     Indication: MUCOPOLYSACCHARIDOSIS II
     Dosage: UNK, UNKNOWN
     Route: 041
     Dates: start: 20091014
  2. LORATADINE [Concomitant]
     Indication: PREMEDICATION
     Dosage: 5 MG, 1X/WEEK
     Route: 048
     Dates: start: 20091203
  3. PARACETAMOL [Concomitant]
     Indication: PREMEDICATION
     Dosage: 240 MG, 1X/WEEK
     Route: 048
     Dates: start: 20091203

REACTIONS (1)
  - Endotracheal intubation complication [Recovered/Resolved]
